FAERS Safety Report 4599889-5 (Version None)
Quarter: 2005Q1

REPORT INFORMATION
  Report Type: 
  Country: None (occurrence: None)
  Receive Date: 20050303
  Receipt Date: 20050215
  Transmission Date: 20050727
  Serious: Yes (Hospitalization)
  Sender: FDA-Public Use
  Company Number: DE_050215190

PATIENT
  Age: 70 Year
  Sex: Female
  Weight: 64 kg

DRUGS (5)
  1. FORTEO [Suspect]
     Indication: OSTEOPOROSIS
     Dosage: 20 UG/SC DAY
  2. ANTIARRHYTHMICS [Concomitant]
  3. ANTIHYPERTENSIVES [Concomitant]
  4. CALCIUM GLUCONATE [Concomitant]
  5. VITAMIN D [Concomitant]

REACTIONS (3)
  - DIARRHOEA [None]
  - GASTROENTERITIS [None]
  - UNEVALUABLE EVENT [None]
